FAERS Safety Report 4323158-1 (Version None)
Quarter: 2004Q1

REPORT INFORMATION
  Report Type: 
  Country: None (occurrence: None)
  Receive Date: 20040322
  Receipt Date: 20040305
  Transmission Date: 20041129
  Serious: Yes (Death, Hospitalization)
  Sender: FDA-Public Use
  Company Number: 2004-06782

PATIENT
  Age: 57 Year
  Sex: Male
  Weight: 72.5755 kg

DRUGS (21)
  1. TENOFOVIR DF [Suspect]
     Indication: HIV INFECTION
     Dosage: 300 MG QD PO
     Route: 048
     Dates: start: 20030101
  2. ZIAGEN [Concomitant]
  3. KALETRA [Concomitant]
  4. EPIVIR [Concomitant]
  5. LIPITOR [Concomitant]
  6. CELEXA [Concomitant]
  7. PRINIVIL [Concomitant]
  8. TOPROL-XL [Concomitant]
  9. ACYCLOVIR [Concomitant]
  10. AMBIEN [Concomitant]
  11. ZYPREXA [Concomitant]
  12. NIASPAN [Concomitant]
  13. ASPIRIN [Concomitant]
  14. COLACE [Concomitant]
  15. PROVENTIL [Concomitant]
  16. NITROSTAT [Concomitant]
  17. NEURONTIN [Concomitant]
  18. DIFLUCAN [Concomitant]
  19. PREDNISONE [Concomitant]
  20. ZITHROMAX [Concomitant]
  21. TESSALON [Concomitant]

REACTIONS (8)
  - ARRHYTHMIA [None]
  - CARDIAC ARREST [None]
  - COAGULOPATHY [None]
  - CONVULSION [None]
  - DIALYSIS [None]
  - RENAL FAILURE ACUTE [None]
  - RESPIRATORY FAILURE [None]
  - UPPER RESPIRATORY TRACT INFECTION [None]
